FAERS Safety Report 22067049 (Version 2)
Quarter: 2024Q4

REPORT INFORMATION
  Report Type: Report from Study
  Country: US (occurrence: US)
  Receive Date: 20230306
  Receipt Date: 20241230
  Transmission Date: 20250115
  Serious: Yes (Other)
  Sender: NOVO NORDISK
  Company Number: US-NOVOPROD-1030374

PATIENT
  Sex: Male

DRUGS (1)
  1. NOVOLOG [Suspect]
     Active Substance: INSULIN ASPART
     Indication: Diabetes mellitus
     Dosage: UNK
     Route: 058
     Dates: start: 2005

REACTIONS (3)
  - Diabetic retinopathy [Unknown]
  - Cataract [Unknown]
  - Post procedural complication [Unknown]
